FAERS Safety Report 7634243-0 (Version None)
Quarter: 2011Q3

REPORT INFORMATION
  Report Type: 
  Country: None (occurrence: None)
  Receive Date: 20110725
  Receipt Date: 20110715
  Transmission Date: 20111222
  Serious: Yes (Other)
  Sender: FDA-Public Use
  Company Number: US-ASTRAZENECA-2011SE42575

PATIENT
  Age: 63 Year
  Sex: Male
  Weight: 101.6 kg

DRUGS (6)
  1. ACTOS [Concomitant]
  2. NEURONTIN [Concomitant]
  3. SEROQUEL [Suspect]
     Route: 048
  4. GLUCOPHAGE [Concomitant]
  5. TRAMADOL HCL [Concomitant]
  6. GLUCOTROL [Concomitant]

REACTIONS (4)
  - DRUG DOSE OMISSION [None]
  - PAIN IN EXTREMITY [None]
  - INSOMNIA [None]
  - TOE AMPUTATION [None]
